FAERS Safety Report 4591882-1 (Version None)
Quarter: 2005Q1

REPORT INFORMATION
  Report Type: 
  Country: None (occurrence: None)
  Receive Date: 20050225
  Receipt Date: 20050217
  Transmission Date: 20050727
  Serious: Yes (Hospitalization)
  Sender: FDA-Public Use
  Company Number: US-MERCK-0502USA02301

PATIENT
  Age: 58 Year
  Sex: Female

DRUGS (2)
  1. VIOXX [Suspect]
     Indication: KNEE ARTHROPLASTY
     Route: 048
     Dates: start: 20010901, end: 20040930
  2. [THERAPY UNSPECIFIED] [Concomitant]
     Indication: DYSMENORRHOEA
     Route: 065

REACTIONS (5)
  - ABDOMINAL PAIN UPPER [None]
  - CHEST PAIN [None]
  - HEART RATE IRREGULAR [None]
  - HYPOAESTHESIA [None]
  - OEDEMA PERIPHERAL [None]
